FAERS Safety Report 9274422 (Version 1)
Quarter: 2013Q2

REPORT INFORMATION
  Report Type: Spontaneous
  Country: US (occurrence: US)
  Receive Date: 20130506
  Receipt Date: 20130506
  Transmission Date: 20140414
  Serious: No
  Sender: FDA-Public Use
  Company Number: US-009507513-1305USA001290

PATIENT
  Sex: Male

DRUGS (1)
  1. PROSCAR [Suspect]
     Dosage: 5 MG, QD
     Route: 048

REACTIONS (5)
  - Penile pain [Unknown]
  - Nocturia [Unknown]
  - Breast tenderness [Unknown]
  - Breast pain [Unknown]
  - Penile pain [Unknown]
